FAERS Safety Report 3624126 (Version 4)
Quarter: 2014Q2

REPORT INFORMATION
  Report Type: Spontaneous
  Country: JP (occurrence: None)
  Receive Date: 20010319
  Receipt Date: 20140402
  Transmission Date: 20141212
  Serious: Yes (Disabling, Other)
  Sender: FDA-Public Use
  Company Number: 2001000706-FJ

PATIENT
  Age: 47 Year
  Sex: Male
  Weight: 65.1 kg

DRUGS (17)
  1. TACROLIMUS CAPSULES [Suspect]
     Indication: PROPHYLAXIS AGAINST TRANSPLANT REJECTION
     Dosage: SEE IMAGE
     Route: 048
     Dates: start: 19990517, end: 19990518
  2. PROGRAF [Suspect]
     Indication: PROPHYLAXIS AGAINST TRANSPLANT REJECTION
     Route: 041
     Dates: start: 19990519, end: 19990526
  3. METHYLPREDNISOLONE SODIUM SUCCINATE [Suspect]
     Indication: PROPHYLAXIS AGAINST TRANSPLANT REJECTION
     Dosage: IV NOS
     Route: 042
     Dates: start: 19990519, end: 19990525
  4. MEDROL [Suspect]
     Indication: PROPHYLAXIS AGAINST TRANSPLANT REJECTION
     Route: 048
     Dates: start: 19990526
  5. CEFAMEZIN (CEFAZOLIN) [Concomitant]
  6. BREDININ (MIZORIBINE) [Concomitant]
  7. FOSMICIN S (FOSFOMYCIN SODIUM) [Concomitant]
  8. DOPAMINE HYCROCHLORIDE [Concomitant]
  9. ALFAROL (ALFACALCIDOL) [Concomitant]
  10. CALCIUM LACTATE HYDRATE [Concomitant]
  11. JUVELA N (TOCOPHERYL NICOTINATE) [Concomitant]
  12. LAC-B (BIFIDOBACTERIUM LACTIS) [Concomitant]
  13. HUMULIN N (INSULIN HUMAN INJECTION, ISOPHANE) [Concomitant]
  14. VANCOMYCIN HYDROCHLORIDE [Concomitant]
  15. ANPLAG (SARPOGRELATE HYDROCHLORIDE) [Concomitant]
  16. LIPLE (ALPROSTADIL) [Concomitant]
  17. CELLCEPT /01275102/ (MYCOPHENOLATE MOFETIL) [Concomitant]

REACTIONS (10)
  - Diabetes mellitus [None]
  - Diabetic nephropathy [None]
  - Gangrene [None]
  - Condition aggravated [None]
  - Hyponatraemia [None]
  - Hepatic function abnormal [None]
  - Cystitis bacterial [None]
  - Clostridium difficile infection [None]
  - Wound infection staphylococcal [None]
  - Toe amputation [None]
